FAERS Safety Report 8306589-4 (Version None)
Quarter: 2012Q2

REPORT INFORMATION
  Report Type: 
  Country: None (occurrence: None)
  Receive Date: 20120420
  Receipt Date: 20120420
  Transmission Date: 20120825
  Serious: Yes (Hospitalization)
  Sender: FDA-Public Use
  Company Number: None

PATIENT
  Age: 25 Year
  Sex: Male
  Weight: 68.0396 kg

DRUGS (2)
  1. ATRIPLA [Suspect]
     Indication: HIV INFECTION
     Dosage: 1100 MG QD ORAL
     Route: 048
     Dates: start: 20111028, end: 20120322
  2. CALCIUM CARBONATE OR PLACEBO FOR CALCIUM CARBONATE [Suspect]
     Dosage: 500 MG BID ORAL
     Route: 048
     Dates: start: 20111028, end: 20120322

REACTIONS (3)
  - ALANINE AMINOTRANSFERASE INCREASED [None]
  - MALLORY-WEISS SYNDROME [None]
  - HAEMATEMESIS [None]
